FAERS Safety Report 5850663-9 (Version None)
Quarter: 2008Q3

REPORT INFORMATION
  Report Type: 
  Country: None (occurrence: None)
  Receive Date: 20080820
  Receipt Date: 20080818
  Transmission Date: 20090109
  Serious: Yes (Other)
  Sender: FDA-Public Use
  Company Number: US-BAYER-200810252BCC

PATIENT
  Age: 61 Year
  Sex: Female
  Weight: 76 kg

DRUGS (5)
  1. ALEVE [Suspect]
     Indication: BACK PAIN
     Dosage: AS USED: 220 MG  UNIT DOSE: 220 MG
     Dates: start: 20071029, end: 20071029
  2. IBUPROFEN [Concomitant]
  3. VICODIN [Concomitant]
     Dates: start: 20071029
  4. VICODIN ES [Concomitant]
     Dates: start: 20071029
  5. TYLENOL [Concomitant]

REACTIONS (6)
  - BURNING SENSATION [None]
  - ERYTHEMA [None]
  - HYPERSENSITIVITY [None]
  - LIP SWELLING [None]
  - THROAT TIGHTNESS [None]
  - VULVOVAGINAL BURNING SENSATION [None]
